FAERS Safety Report 18602733 (Version 1)
Quarter: 2020Q4

REPORT INFORMATION
  Report Type: Report from Study
  Country: None (occurrence: US)
  Receive Date: 20201211
  Receipt Date: 20201211
  Transmission Date: 20210114
  Serious: Yes (Hospitalization)
  Sender: FDA-Public Use
  Company Number: US-ABBVIE-20K-163-3682128-00

PATIENT
  Age: 64 Year
  Sex: Female

DRUGS (2)
  1. IMBRUVICA [Suspect]
     Active Substance: IBRUTINIB
     Indication: CHRONIC LYMPHOCYTIC LEUKAEMIA
     Route: 048
     Dates: start: 20201030
  2. IMBRUVICA [Suspect]
     Active Substance: IBRUTINIB
     Route: 048
     Dates: start: 20201204, end: 20201204

REACTIONS (15)
  - Vomiting [Not Recovered/Not Resolved]
  - Back pain [Unknown]
  - Dyspnoea [Unknown]
  - Pain [Unknown]
  - Asthenia [Unknown]
  - Blood glucose abnormal [Unknown]
  - Middle ear effusion [Unknown]
  - Diabetes mellitus [Unknown]
  - Blood electrolytes abnormal [Unknown]
  - Pain [Unknown]
  - Ear infection [Unknown]
  - Sinusitis [Unknown]
  - Neck pain [Unknown]
  - White blood cell count increased [Unknown]
  - Liver injury [Unknown]

NARRATIVE: CASE EVENT DATE: 2020
